FAERS Safety Report 6560954-4 (Version None)
Quarter: 2010Q1

REPORT INFORMATION
  Report Type: 
  Country: None (occurrence: None)
  Receive Date: 20100130
  Receipt Date: 20091001
  Transmission Date: 20100710
  Serious: No
  Sender: FDA-Public Use
  Company Number: US-ABBOTT-09P-163-0600354-00

PATIENT
  Sex: Female

DRUGS (1)
  1. HUMIRA [Suspect]
     Indication: RHEUMATOID ARTHRITIS
     Dates: start: 20090212

REACTIONS (6)
  - ASTHENIA [None]
  - GAIT DISTURBANCE [None]
  - INFLUENZA [None]
  - NAUSEA [None]
  - PYREXIA [None]
  - VOMITING [None]
